FAERS Safety Report 17608926 (Version 1)
Quarter: 2020Q2

REPORT INFORMATION
  Report Type: Report from Study
  Country: GB (occurrence: GB)
  Receive Date: 20200401
  Receipt Date: 20200401
  Transmission Date: 20200713
  Serious: Yes (Other)
  Sender: FDA-Public Use
  Company Number: GB-ROCHE-2572450

PATIENT
  Sex: Female

DRUGS (2)
  1. INSULIN [Concomitant]
     Active Substance: INSULIN NOS
  2. ROACTEMRA [Suspect]
     Active Substance: TOCILIZUMAB
     Indication: TEMPORAL ARTERITIS
     Route: 058
     Dates: start: 2019

REACTIONS (3)
  - Abscess limb [Unknown]
  - Diabetes mellitus [Unknown]
  - Dysstasia [Unknown]
